FAERS Safety Report 19182447 (Version 2)
Quarter: 2021Q2

REPORT INFORMATION
  Report Type: Other
  Country: PY (occurrence: PY)
  Receive Date: 20210427
  Receipt Date: 20210526
  Transmission Date: 20210717
  Serious: No
  Sender: FDA-Public Use
  Company Number: PY-ROCHE-2817632

PATIENT
  Age: 34 Year
  Sex: Female
  Weight: 89 kg

DRUGS (11)
  1. CHLORPHENIRAMINE. [Concomitant]
     Active Substance: CHLORPHENIRAMINE
     Indication: PREMEDICATION
     Route: 042
     Dates: start: 20200915, end: 20200915
  2. METHYLPREDNISOLONE. [Concomitant]
     Active Substance: METHYLPREDNISOLONE
     Dosage: NEXT DOSE RECEIVED ON : 26/APR/2021
     Route: 042
     Dates: start: 20200929, end: 20200929
  3. METHYLPREDNISOLONE. [Concomitant]
     Active Substance: METHYLPREDNISOLONE
     Indication: PREMEDICATION
     Route: 042
     Dates: start: 20200915, end: 20200915
  4. CHLORPHENIRAMINE. [Concomitant]
     Active Substance: CHLORPHENIRAMINE
     Dosage: NEXT DOSE RECEIVED ON : 26/APR/2021
     Route: 042
     Dates: start: 20200929, end: 20200929
  5. OCRELIZUMAB. [Suspect]
     Active Substance: OCRELIZUMAB
     Route: 042
     Dates: start: 20210426, end: 20210426
  6. ONDANSETRON [Concomitant]
     Active Substance: ONDANSETRON
     Indication: PREMEDICATION
     Route: 042
     Dates: start: 20200915, end: 20200915
  7. OMEPRAZOLE. [Concomitant]
     Active Substance: OMEPRAZOLE
     Indication: PREMEDICATION
     Route: 042
     Dates: start: 20200915, end: 20200915
  8. OMEPRAZOLE. [Concomitant]
     Active Substance: OMEPRAZOLE
     Dosage: NEXT DOSE RECEIVED ON : 26/APR/2021
     Route: 042
     Dates: start: 20200929, end: 20200929
  9. OCRELIZUMAB. [Suspect]
     Active Substance: OCRELIZUMAB
     Dosage: 300 MG/250 ML
     Route: 042
     Dates: start: 20200929, end: 20200929
  10. OCRELIZUMAB. [Suspect]
     Active Substance: OCRELIZUMAB
     Indication: MULTIPLE SCLEROSIS
     Route: 042
     Dates: start: 20200915, end: 20200915
  11. ONDANSETRON [Concomitant]
     Active Substance: ONDANSETRON
     Dosage: NEXT DOSE RECEIVED ON : 26/APR/2021
     Route: 042
     Dates: start: 20200929, end: 20200929

REACTIONS (1)
  - Influenza like illness [Recovered/Resolved]

NARRATIVE: CASE EVENT DATE: 20210410
